FAERS Safety Report 19093355 (Version 1)
Quarter: 2021Q2

REPORT INFORMATION
  Report Type: Spontaneous
  Country: CA (occurrence: CA)
  Receive Date: 20210405
  Receipt Date: 20210405
  Transmission Date: 20210717
  Serious: Yes (Hospitalization)
  Sender: FDA-Public Use
  Company Number: CA-TEVA-2021-CA-1897240

PATIENT
  Age: 61 Year
  Sex: Male

DRUGS (3)
  1. LEUCOVORIN CALCIUM INJECTION USP [Suspect]
     Active Substance: LEUCOVORIN CALCIUM
     Route: 065
  2. FLUOROURACIL INJECTION [Suspect]
     Active Substance: FLUOROURACIL
     Route: 065
  3. OXALIPLATIN INJECTION SINGLE USE VIALS [Suspect]
     Active Substance: OXALIPLATIN
     Route: 065

REACTIONS (1)
  - Febrile neutropenia [Recovered/Resolved]
